FAERS Safety Report 8521738-0 (Version None)
Quarter: 2012Q3

REPORT INFORMATION
  Report Type: 
  Country: None (occurrence: None)
  Receive Date: 20120719
  Receipt Date: 20120717
  Transmission Date: 20120928
  Serious: Yes (Death, Other)
  Sender: FDA-Public Use
  Company Number: PHHY2012SE061233

PATIENT
  Age: 79 Year
  Sex: Female

DRUGS (1)
  1. DIAZEPAM [Suspect]

REACTIONS (4)
  - ASPIRATION [None]
  - PNEUMONIA [None]
  - OVERDOSE [None]
  - DEPRESSED LEVEL OF CONSCIOUSNESS [None]
